FAERS Safety Report 7332664-7 (Version None)
Quarter: 2011Q1

REPORT INFORMATION
  Report Type: 
  Country: None (occurrence: None)
  Receive Date: 20110304
  Receipt Date: 20110228
  Transmission Date: 20110831
  Serious: Yes (Other)
  Sender: FDA-Public Use
  Company Number: ES-PFIZER INC-2011043734

PATIENT
  Age: 37 Year
  Sex: Female

DRUGS (1)
  1. CHAMPIX [Suspect]
     Indication: SMOKING CESSATION THERAPY
     Dosage: 1 MG BID AND 1 MG OD ON ALTERNATE DAYS. 1 MG OD UNTIL THE SUMMER
     Dates: start: 20100908

REACTIONS (2)
  - SINUSITIS [None]
  - MOOD SWINGS [None]
